FAERS Safety Report 17826814 (Version 5)
Quarter: 2020Q3

REPORT INFORMATION
  Report Type: Spontaneous
  Country: RO (occurrence: RO)
  Receive Date: 20200526
  Receipt Date: 20200723
  Transmission Date: 20201102
  Serious: Yes (Death, Hospitalization, Other)
  Sender: FDA-Public Use
  Company Number: RO-CELLTRION INC.-2020RO022541

PATIENT

DRUGS (17)
  1. METHYLPREDNISOLONE. [Suspect]
     Active Substance: METHYLPREDNISOLONE
     Indication: POLYCHONDRITIS
     Dosage: 1 G, QD
     Route: 042
  2. AZATHIOPRINE. [Suspect]
     Active Substance: AZATHIOPRINE
     Indication: POLYCHONDRITIS
     Dosage: STOPPED DUE TO INTOLERANCE
     Route: 065
  3. CYCLOSPORINE. [Suspect]
     Active Substance: CYCLOSPORINE
     Indication: DRY EYE
     Dosage: STOPPED DUE TO SEVERE HYPERTENSION AND RENAL INSUFFICIENCY
     Route: 065
  4. CYCLOPHOSPHAMIDE. [Suspect]
     Active Substance: CYCLOPHOSPHAMIDE
     Indication: POLYCHONDRITIS
     Dosage: 15 MG/KG, QM
     Route: 042
  5. CYCLOPHOSPHAMIDE. [Suspect]
     Active Substance: CYCLOPHOSPHAMIDE
     Dosage: UNK UNK, QMN
     Route: 048
  6. METHYLPREDNISOLONE. [Suspect]
     Active Substance: METHYLPREDNISOLONE
     Dosage: 1 MG/KG, DAILY (ONE MONTH WITH TAPERING)
     Route: 048
  7. DEXAMETHASONE. [Concomitant]
     Active Substance: DEXAMETHASONE
     Indication: POLYCHONDRITIS
     Dosage: 1 MG (5 GUT/DAY)
     Route: 061
  8. TIMOLOL. [Concomitant]
     Active Substance: TIMOLOL
     Indication: POLYCHONDRITIS
     Dosage: 0.5 % (2 GUT/DAY)
     Route: 065
  9. CICLOSPORIN [Concomitant]
     Active Substance: CYCLOSPORINE
     Indication: DRY EYE
     Dosage: 1 MG (1 GTT/DAY)
     Route: 065
  10. OFLOXACIN. [Concomitant]
     Active Substance: OFLOXACIN
     Indication: POLYCHONDRITIS
     Dosage: 0.3 % (3 GUT/DAY)
     Route: 061
  11. TOBRAMYCIN. [Concomitant]
     Active Substance: TOBRAMYCIN
     Indication: POLYCHONDRITIS
     Dosage: 3 MG
     Route: 061
  12. INFLIXIMAB (UNKNOWN) [Suspect]
     Active Substance: INFLIXIMAB
     Indication: POLYCHONDRITIS
     Dosage: 3 MG/KG, TOTAL
     Route: 041
  13. CYCLOSPORINE. [Suspect]
     Active Substance: CYCLOSPORINE
     Dosage: 1 MG (1GTT/DAY)
     Route: 065
  14. LEFLUNOMIDE. [Suspect]
     Active Substance: LEFLUNOMIDE
     Indication: POLYCHONDRITIS
     Dosage: 10 MG, QD
     Route: 065
  15. CYCLOPHOSPHAMIDE. [Suspect]
     Active Substance: CYCLOPHOSPHAMIDE
     Dosage: 15 MG/KG (6 PULSES), MONTHLY
     Route: 042
  16. TROPICAMIDE. [Concomitant]
     Active Substance: TROPICAMIDE
     Indication: POLYCHONDRITIS
     Dosage: 1 % (3 GUT/DAY)
     Route: 061
  17. LEFLUNOMIDE. [Suspect]
     Active Substance: LEFLUNOMIDE
     Dosage: 20 MG, QD
     Route: 065

REACTIONS (11)
  - Hypertension [Unknown]
  - Product use in unapproved indication [Unknown]
  - Diarrhoea [Recovering/Resolving]
  - Renal failure [Unknown]
  - Escherichia sepsis [Recovering/Resolving]
  - Arthritis [Unknown]
  - Laryngeal disorder [Unknown]
  - Drug intolerance [Unknown]
  - Sinonasal papilloma [Unknown]
  - Cardio-respiratory arrest [Fatal]
  - Off label use [Unknown]
